FAERS Safety Report 11046791 (Version 2)
Quarter: 2015Q2

REPORT INFORMATION
  Report Type: Spontaneous
  Country: US (occurrence: None)
  Receive Date: 20150416
  Receipt Date: 20150430
  Transmission Date: 20150821
  Serious: Yes (Hospitalization, Other)
  Sender: FDA-Public Use
  Company Number: US2015048520

PATIENT
  Age: 67 Year
  Sex: Male

DRUGS (6)
  1. COMPLERA (EMTRICITABINE, RILPIVIRINE HYDROCHLORIDE, TENOFOVIR DISOPROXIL FUMARATE) [Concomitant]
  2. TIVICAY [Suspect]
     Active Substance: DOLUTEGRAVIR SODIUM
     Indication: HIV INFECTION
     Route: 048
     Dates: start: 2012
  3. NADOLOL (NADOLOL) [Concomitant]
     Active Substance: NADOLOL
  4. GABAPENTIN (GABAPENTIN) [Concomitant]
     Active Substance: GABAPENTIN
  5. BACTRIM (SULFAMETHOXAZOLE + TRIMETHOPRIM) [Concomitant]
  6. SEROQUEL [Concomitant]
     Active Substance: QUETIAPINE FUMARATE

REACTIONS (9)
  - Joint swelling [None]
  - Peripheral swelling [None]
  - Erythema [None]
  - Skin warm [None]
  - Cellulitis [None]
  - Pain in extremity [None]
  - Haemoglobin decreased [None]
  - Vomiting [None]
  - White blood cell count decreased [None]

NARRATIVE: CASE EVENT DATE: 201503
